FAERS Safety Report 8493497-1 (Version None)
Quarter: 2012Q3

REPORT INFORMATION
  Report Type: 
  Country: None (occurrence: None)
  Receive Date: 20120706
  Receipt Date: 20120628
  Transmission Date: 20120928
  Serious: Yes (Other)
  Sender: FDA-Public Use
  Company Number: GB-BAUSCH-2012BL003029

PATIENT
  Age: 35 Year
  Sex: Female

DRUGS (10)
  1. FENTANYL-100 [Concomitant]
  2. ACETAMINOPHEN [Concomitant]
  3. ACETAZOLAMIDE [Concomitant]
  4. DEXAMETHASONE SODIUM PHOSPHATE [Suspect]
     Indication: KERATOPLASTY
     Dates: start: 20101103, end: 20101103
  5. REMIFENTANIL [Concomitant]
  6. ATRACURIUM BESYLATE [Concomitant]
  7. ONDANSETRON [Concomitant]
  8. CEFUROXIME [Concomitant]
  9. MIDAZOLAM [Concomitant]
  10. PROPOFOL [Concomitant]

REACTIONS (2)
  - CORNEAL GRAFT REJECTION [None]
  - EXPIRED DRUG ADMINISTERED [None]
